FAERS Safety Report 8961203 (Version 1)
Quarter: 2012Q4

REPORT INFORMATION
  Report Type: 
  Country: US (occurrence: US)
  Receive Date: 20121213
  Receipt Date: 20121213
  Transmission Date: 20130627
  Serious: No
  Sender: FDA-Public Use
  Company Number: US-ALLERGAN-1213455US

PATIENT
  Age: 37 Year
  Sex: Male

DRUGS (1)
  1. LUMIGAN� 0.01% [Suspect]
     Indication: OPEN ANGLE GLAUCOMA
     Dosage: 2 Gtt, qhs
     Route: 047
     Dates: start: 201103

REACTIONS (2)
  - Eye irritation [Recovering/Resolving]
  - Eye pruritus [Recovering/Resolving]
